FAERS Safety Report 9269730 (Version 2)
Quarter: 2013Q2

REPORT INFORMATION
  Report Type: Report from Study
  Country: US (occurrence: US)
  Receive Date: 20130503
  Receipt Date: 20130524
  Transmission Date: 20140414
  Serious: Yes (Hospitalization, Other)
  Sender: FDA-Public Use
  Company Number: US-ABBOTT-13P-163-1081547-00

PATIENT
  Age: 68 Year
  Sex: Female

DRUGS (15)
  1. HUMIRA [Suspect]
     Indication: CROHN^S DISEASE
     Route: 058
     Dates: start: 20130304, end: 20130304
  2. HUMIRA [Suspect]
     Route: 058
     Dates: start: 20130318, end: 20130318
  3. HUMIRA [Suspect]
     Route: 058
     Dates: start: 20130401
  4. PREDNISONE [Suspect]
     Indication: PRODUCT USED FOR UNKNOWN INDICATION
  5. HYDROCORTISONE [Suspect]
     Indication: CROHN^S DISEASE
     Dosage: 20 MG IN THE AM, 5 MG IN THE PM
  6. ATORVASTATIN [Concomitant]
     Indication: BLOOD CHOLESTEROL INCREASED
  7. CALCIUM WITH VITAMIN D [Concomitant]
     Indication: MINERAL SUPPLEMENTATION
     Dosage: 500 MG DAILY
  8. CITALOPRAM [Concomitant]
     Indication: DEPRESSION
  9. RISPERDAL [Concomitant]
     Indication: HORMONE THERAPY
     Dosage: 1 MG DAILY
  10. MECLIZINE [Concomitant]
     Indication: DIZZINESS
     Dosage: 25 MG DAILY
  11. METOPROLOL [Concomitant]
     Indication: HYPERTENSION
  12. ZINC [Concomitant]
     Indication: VITAMIN SUPPLEMENTATION
     Dosage: 25 MG DAILY
  13. PANTOPRAZOLE [Concomitant]
     Indication: GASTROOESOPHAGEAL REFLUX DISEASE
     Dosage: 40 MG DAILY
  14. PLAVIX [Concomitant]
     Indication: CORONARY ARTERY DISEASE
     Dosage: 75 MG DAILY
  15. VITAMIN B12 [Concomitant]
     Indication: VITAMIN SUPPLEMENTATION

REACTIONS (4)
  - Renal failure acute [Recovered/Resolved]
  - Dehydration [Recovered/Resolved]
  - Blood creatinine increased [Recovered/Resolved]
  - Adrenal disorder [Recovered/Resolved]
